FAERS Safety Report 16962183 (Version 2)
Quarter: 2020Q1

REPORT INFORMATION
  Report Type: Spontaneous
  Country: US (occurrence: US)
  Receive Date: 20191025
  Receipt Date: 20200305
  Transmission Date: 20200409
  Serious: Yes (Hospitalization)
  Sender: FDA-Public Use
  Company Number: US-JNJFOC-20191026414

PATIENT
  Age: 38 Year
  Sex: Female
  Weight: 108.96 kg

DRUGS (2)
  1. 6 MP [Concomitant]
     Active Substance: MERCAPTOPURINE
  2. REMICADE [Suspect]
     Active Substance: INFLIXIMAB
     Indication: CROHN^S DISEASE
     Route: 042
     Dates: start: 20190926

REACTIONS (2)
  - Staphylococcal infection [Unknown]
  - Rash [Unknown]

NARRATIVE: CASE EVENT DATE: 201909
